FAERS Safety Report 15200991 (Version 3)
Quarter: 2019Q2

REPORT INFORMATION
  Report Type: Spontaneous
  Country: JP (occurrence: JP)
  Receive Date: 20180726
  Receipt Date: 20190521
  Transmission Date: 20190711
  Serious: Yes (Other)
  Sender: FDA-Public Use
  Company Number: JP-AMGEN-JPNSP2018101679

PATIENT
  Age: 73 Year
  Sex: Male

DRUGS (6)
  1. SHIN^ISEIHAITO [Suspect]
     Active Substance: HERBALS
     Indication: SINUSITIS
     Dosage: UNK
     Route: 048
  2. TALION [BEPOTASTINE BESILATE] [Suspect]
     Active Substance: BEPOTASTINE BESILATE
     Indication: SINUSITIS
     Dosage: UNK
     Route: 048
  3. CLARIS [Suspect]
     Active Substance: SULFACETAMIDE SODIUM\SULFUR
     Indication: SINUSITIS
     Dosage: UNK
     Route: 048
  4. ENBREL [Suspect]
     Active Substance: ETANERCEPT
     Indication: PRODUCT USED FOR UNKNOWN INDICATION
     Dosage: UNK
     Route: 065
  5. TALION [BEPOTASTINE BESILATE] [Suspect]
     Active Substance: BEPOTASTINE BESILATE
     Dosage: UNK
     Route: 048
  6. SHIN^ISEIHAITO [Suspect]
     Active Substance: HERBALS
     Dosage: UNK
     Route: 048

REACTIONS (2)
  - Rheumatoid arthritis [Unknown]
  - Sinusitis [Unknown]
